FAERS Safety Report 6145370-1 (Version None)
Quarter: 2009Q2

REPORT INFORMATION
  Report Type: 
  Country: None (occurrence: None)
  Receive Date: 20090406
  Receipt Date: 20090326
  Transmission Date: 20091009
  Serious: Yes (Hospitalization, Other)
  Sender: FDA-Public Use
  Company Number: CA-ABBOTT-09P-028-0561617-00

PATIENT
  Sex: Female
  Weight: 51.756 kg

DRUGS (11)
  1. HUMIRA [Suspect]
     Indication: RHEUMATOID ARTHRITIS
     Route: 058
     Dates: start: 20081120, end: 20090228
  2. HUMIRA [Suspect]
  3. PLAQUENIL [Concomitant]
     Indication: PALPITATIONS
  4. COUMADIN [Concomitant]
     Indication: PALPITATIONS
  5. IRON [Concomitant]
     Indication: DRUG USE FOR UNKNOWN INDICATION
  6. SYNTHROID [Concomitant]
     Indication: DRUG USE FOR UNKNOWN INDICATION
  7. APO-FOLIC [Concomitant]
     Indication: DRUG USE FOR UNKNOWN INDICATION
  8. CARBOCAL D [Concomitant]
     Indication: DRUG USE FOR UNKNOWN INDICATION
  9. PREVACID [Concomitant]
     Indication: DRUG USE FOR UNKNOWN INDICATION
  10. DIOVAN [Concomitant]
     Indication: DRUG USE FOR UNKNOWN INDICATION
  11. ISOTAMINE [Concomitant]
     Indication: DRUG USE FOR UNKNOWN INDICATION

REACTIONS (17)
  - AMNESIA [None]
  - BALANCE DISORDER [None]
  - BLOOD PRESSURE SYSTOLIC INCREASED [None]
  - CEREBROVASCULAR ACCIDENT [None]
  - DYSPEPSIA [None]
  - FATIGUE [None]
  - FEELING ABNORMAL [None]
  - HYPERSOMNIA [None]
  - HYPOTENSION [None]
  - MEMORY IMPAIRMENT [None]
  - NAUSEA [None]
  - PAIN IN EXTREMITY [None]
  - PAIN IN JAW [None]
  - PARAESTHESIA [None]
  - PRURITUS [None]
  - URINARY TRACT INFECTION [None]
  - VISUAL IMPAIRMENT [None]
